FAERS Safety Report 5148524-6 (Version None)
Quarter: 2006Q4

REPORT INFORMATION
  Report Type: 
  Country: None (occurrence: None)
  Receive Date: 20060918
  Receipt Date: 20060523
  Transmission Date: 20070319
  Serious: Yes (Other)
  Sender: FDA-Public Use
  Company Number: US-JNJFOC-20060500128

PATIENT
  Age: 32 Year
  Sex: Female

DRUGS (4)
  1. TOPAMAX [Suspect]
     Indication: MIGRAINE
     Dosage: 50 MG , IN 1 DAY, ORAL
     Route: 048
     Dates: start: 20051001
  2. ORAL CONTRACEPTIVE () ORAL CONTRACEPTIVE NOS [Concomitant]
  3. ABIEN () ZOLPIDEM TARTRATE [Concomitant]
  4. LEXAPRO () SSRI [Concomitant]

REACTIONS (2)
  - METABOLIC ACIDOSIS [None]
  - PARAESTHESIA [None]
